FAERS Safety Report 23110204 (Version 1)
Quarter: 2023Q4

REPORT INFORMATION
  Report Type: Report from Study
  Country: AU (occurrence: AU)
  Receive Date: 20231026
  Receipt Date: 20231026
  Transmission Date: 20240110
  Serious: Yes (Hospitalization, Other)
  Sender: FDA-Public Use
  Company Number: AU-002147023-NVSC2023AU225130

PATIENT

DRUGS (3)
  1. RUXOLITINIB [Suspect]
     Active Substance: RUXOLITINIB
     Indication: Myelofibrosis
     Dosage: 50 MG, BID
     Route: 048
     Dates: start: 20220412
  2. RUXOLITINIB [Suspect]
     Active Substance: RUXOLITINIB
     Dosage: 40 MG, BID (CYCLE 19, DAY 3)
     Route: 048
     Dates: start: 20230412
  3. RUXOLITINIB [Suspect]
     Active Substance: RUXOLITINIB
     Dosage: 50 MG, BID ((CYCLE 19, DAY 20)
     Route: 048
     Dates: start: 20230418

REACTIONS (12)
  - Dystonia [Recovered/Resolved]
  - Escherichia bacteraemia [Unknown]
  - Hyponatraemia [Unknown]
  - Nausea [Recovered/Resolved]
  - Vomiting [Unknown]
  - Nocardia sepsis [Recovered/Resolved]
  - Oral candidiasis [Recovered/Resolved]
  - Pneumocystis jirovecii pneumonia [Unknown]
  - Pneumonia bacterial [Recovered/Resolved]
  - Hypophagia [Unknown]
  - Serratia infection [Unknown]
  - Weight decreased [Unknown]

NARRATIVE: CASE EVENT DATE: 20230501
